FAERS Safety Report 6006843-5 (Version None)
Quarter: 2008Q4

REPORT INFORMATION
  Report Type: 
  Country: None (occurrence: None)
  Receive Date: 20081217
  Receipt Date: 20071029
  Transmission Date: 20090506
  Serious: No
  Sender: FDA-Public Use
  Company Number: US-ASTRAZENECA-2007UW25051

PATIENT
  Age: 80 Year
  Sex: Female
  Weight: 62.1 kg

DRUGS (8)
  1. CRESTOR [Suspect]
     Indication: BLOOD CHOLESTEROL INCREASED
     Route: 048
     Dates: start: 20070601
  2. FOLIC ACID [Concomitant]
  3. MYLOXICAN [Concomitant]
  4. METHOTREXATE [Concomitant]
  5. LISINOPRIL [Concomitant]
     Route: 048
  6. ASPIRIN [Concomitant]
  7. CITRICAL [Concomitant]
  8. CENTRUM SILVER [Concomitant]

REACTIONS (2)
  - CHEST DISCOMFORT [None]
  - DISCOMFORT [None]
